FAERS Safety Report 10891707 (Version 2)
Quarter: 2015Q2

REPORT INFORMATION
  Report Type: Spontaneous
  Country: US (occurrence: US)
  Receive Date: 20150306
  Receipt Date: 20150426
  Transmission Date: 20150821
  Serious: No
  Sender: FDA-Public Use
  Company Number: US-009507513-1502USA012056

PATIENT
  Age: 30 Year
  Sex: Female
  Weight: 55.78 kg

DRUGS (1)
  1. NEXPLANON [Suspect]
     Active Substance: ETONOGESTREL
     Indication: CONTRACEPTION
     Dosage: UNK
     Route: 059
     Dates: start: 20150210, end: 201502

REACTIONS (2)
  - Implant site swelling [Recovered/Resolved]
  - Implant site pruritus [Recovered/Resolved]

NARRATIVE: CASE EVENT DATE: 201502
